FAERS Safety Report 11990026 (Version 2)
Quarter: 2016Q1

REPORT INFORMATION
  Report Type: Spontaneous
  Country: DE (occurrence: DE)
  Receive Date: 20160202
  Receipt Date: 20160216
  Transmission Date: 20160526
  Serious: No
  Sender: FDA-Public Use
  Company Number: DE-ELI_LILLY_AND_COMPANY-DE201601007782

PATIENT
  Age: 55 Year
  Sex: Male

DRUGS (1)
  1. CIALIS [Suspect]
     Active Substance: TADALAFIL
     Indication: PRODUCT USED FOR UNKNOWN INDICATION
     Dosage: 10 MG, UNKNOWN
     Route: 048

REACTIONS (4)
  - Blood urine present [Unknown]
  - Drug withdrawal syndrome [Unknown]
  - Mucosal inflammation [Unknown]
  - Urethritis noninfective [Unknown]
